FAERS Safety Report 8308815-4 (Version None)
Quarter: 2012Q1

REPORT INFORMATION
  Report Type: 
  Country: None (occurrence: None)
  Receive Date: 20120327
  Receipt Date: 20110419
  Transmission Date: 20120608
  Serious: Yes (Other)
  Sender: FDA-Public Use
  Company Number: PHHY2011US17374

PATIENT
  Sex: Female
  Weight: 73.9 kg

DRUGS (2)
  1. GLEEVEC [Suspect]
     Indication: CHRONIC MYELOID LEUKAEMIA
     Dosage: 400;300 MG, DAILY, ORAL
     Route: 048
     Dates: start: 20020101
  2. GLEEVEC [Suspect]
     Indication: CHRONIC MYELOID LEUKAEMIA
     Dosage: 400;300 MG, DAILY, ORAL
     Route: 048
     Dates: start: 20110121

REACTIONS (3)
  - FATIGUE [None]
  - MUSCLE SPASMS [None]
  - EYE HAEMORRHAGE [None]
